FAERS Safety Report 11026563 (Version 2)
Quarter: 2015Q2

REPORT INFORMATION
  Report Type: Spontaneous
  Country: US (occurrence: US)
  Receive Date: 20150414
  Receipt Date: 20150415
  Transmission Date: 20150821
  Serious: Yes (Other)
  Sender: FDA-Public Use
  Company Number: US-PFIZER INC-2015121341

PATIENT
  Age: 52 Year
  Sex: Female
  Weight: 116.6 kg

DRUGS (10)
  1. FLEXERIL [Concomitant]
     Active Substance: CYCLOBENZAPRINE HYDROCHLORIDE
     Dosage: 10 MG, 1X/DAY (EVERY BEDTIME)
     Route: 048
     Dates: start: 20150211
  2. ALEVE [Concomitant]
     Active Substance: NAPROXEN SODIUM
     Dosage: 440 MG, 2X/DAY
     Route: 048
  3. GABAPENTIN. [Concomitant]
     Active Substance: GABAPENTIN
     Dosage: 1200 MG, 3X/DAY
     Route: 048
     Dates: start: 20150204
  4. PRAVASTATIN [Concomitant]
     Active Substance: PRAVASTATIN\PRAVASTATIN SODIUM
     Dosage: 40 MG, 1X/DAY
     Route: 048
     Dates: start: 20150204
  5. ASENAPINE [Concomitant]
     Active Substance: ASENAPINE
     Dosage: 10 MG, 2X/DAY (2 TIMES EVERY DAY UNDER THE TONGUE AND ALLOW TO DISSOLVE)
     Route: 060
  6. LYRICA [Suspect]
     Active Substance: PREGABALIN
     Indication: BACK PAIN
     Dosage: 50 MG, 2X/DAY
     Route: 048
     Dates: start: 20140709
  7. ALEVE [Concomitant]
     Active Substance: NAPROXEN SODIUM
     Dosage: 220 MG, 2X/DAY
     Route: 048
     Dates: start: 20150211
  8. SYNTHROID [Concomitant]
     Active Substance: LEVOTHYROXINE SODIUM
     Dosage: 75 MCG, 1X/DAY
     Route: 048
     Dates: start: 20150204
  9. TRILIPIX [Concomitant]
     Active Substance: FENOFIBRIC ACID
     Dosage: 45 MG, 1X/DAY
     Route: 048
     Dates: start: 20150204
  10. EXCEDRIN MIGRAINE [Concomitant]
     Active Substance: ACETAMINOPHEN\ASPIRIN\CAFFEINE
     Dosage: 65 MG, 2X/DAY

REACTIONS (7)
  - Drug ineffective [Unknown]
  - Drug abuse [Unknown]
  - Drug dependence [Unknown]
  - Hyperlipidaemia [Unknown]
  - Body mass index increased [Unknown]
  - Blister [Unknown]
  - Bipolar I disorder [Unknown]

NARRATIVE: CASE EVENT DATE: 20140709
